FAERS Safety Report 25455807 (Version 2)
Quarter: 2025Q3

REPORT INFORMATION
  Report Type: Spontaneous
  Country: EU (occurrence: EU)
  Receive Date: 20250619
  Receipt Date: 20250704
  Transmission Date: 20251021
  Serious: Yes (Other)
  Sender: REGENERON
  Company Number: EU-BAYER-2025A079448

PATIENT
  Age: 83 Year
  Sex: Male

DRUGS (3)
  1. EYLEA [Suspect]
     Active Substance: AFLIBERCEPT
     Indication: Age-related macular degeneration
     Route: 031
     Dates: start: 202502, end: 202502
  2. EYLEA [Suspect]
     Active Substance: AFLIBERCEPT
     Indication: Eye disorder
     Route: 031
     Dates: start: 202503, end: 202503
  3. EYLEA [Suspect]
     Active Substance: AFLIBERCEPT
     Route: 031
     Dates: start: 20250423, end: 20250423

REACTIONS (4)
  - Blindness [Recovered/Resolved]
  - Vitritis [Unknown]
  - Visual acuity reduced [Recovered/Resolved]
  - Ocular discomfort [Unknown]

NARRATIVE: CASE EVENT DATE: 20250101
